FAERS Safety Report 4832661-7 (Version None)
Quarter: 2005Q4

REPORT INFORMATION
  Report Type: 
  Country: None (occurrence: None)
  Receive Date: 20051117
  Receipt Date: 20051109
  Transmission Date: 20060501
  Serious: Yes (Hospitalization)
  Sender: FDA-Public Use
  Company Number: 2005-11-0530

PATIENT
  Age: 62 Year
  Sex: Male

DRUGS (6)
  1. INTRON A [Suspect]
     Indication: MALIGNANT MELANOMA
     Dosage: 45 MIU 5XWK IV; 16MIU/M2 5XWK
     Route: 042
     Dates: start: 20050321, end: 20050301
  2. INTRON A [Suspect]
     Indication: MALIGNANT MELANOMA
     Dosage: 45 MIU 5XWK IV; 16MIU/M2 5XWK
     Route: 042
     Dates: start: 20050301, end: 20050415
  3. INTRON A [Suspect]
     Indication: MALIGNANT MELANOMA
     Dosage: 23MIU 3XWK SC
     Route: 058
     Dates: start: 20050101, end: 20050101
  4. VALSARTAN [Concomitant]
  5. GEMFIBROZIL [Concomitant]
  6. FISH OIL [Concomitant]

REACTIONS (9)
  - ALANINE AMINOTRANSFERASE INCREASED [None]
  - ASPARTATE AMINOTRANSFERASE INCREASED [None]
  - BLOOD TRIGLYCERIDES INCREASED [None]
  - CANDIDIASIS [None]
  - CATHETER RELATED INFECTION [None]
  - FUNGAEMIA [None]
  - HYPERTRIGLYCERIDAEMIA [None]
  - PANCREATITIS [None]
  - STAPHYLOCOCCAL BACTERAEMIA [None]
